FAERS Safety Report 7963162-5 (Version None)
Quarter: 2011Q4

REPORT INFORMATION
  Report Type: 
  Country: None (occurrence: None)
  Receive Date: 20111207
  Receipt Date: 20111129
  Transmission Date: 20120403
  Serious: Yes (Hospitalization)
  Sender: FDA-Public Use
  Company Number: CA-ELI_LILLY_AND_COMPANY-CA201111008842

PATIENT
  Age: 58 Year
  Sex: Male

DRUGS (11)
  1. CYCLOPHOSPHAMIDE [Concomitant]
  2. LIPITOR [Concomitant]
  3. MEDROL [Concomitant]
  4. NEURONTIN [Concomitant]
  5. ASPIRIN [Concomitant]
  6. VITAMIN D [Concomitant]
  7. IMMUNE GLOBULIN NOS [Concomitant]
  8. FORTEO [Suspect]
     Indication: OSTEOPOROSIS
     Dosage: 20 UG, QD
     Route: 058
     Dates: start: 20110725
  9. CALCIUM [Concomitant]
  10. POTASSIUM ACETATE [Concomitant]
  11. PRILOSEC [Concomitant]

REACTIONS (2)
  - IMMUNE SYSTEM DISORDER [None]
  - INVESTIGATION [None]
